FAERS Safety Report 16946876 (Version 1)
Quarter: 2019Q4

REPORT INFORMATION
  Report Type: Spontaneous
  Country: US (occurrence: US)
  Receive Date: 20191022
  Receipt Date: 20191022
  Transmission Date: 20200122
  Serious: No
  Sender: FDA-Public Use
  Company Number: US-AMAG PHARMACEUTICALS, INC.-AMAG201905386

PATIENT
  Age: 55 Year
  Sex: Female
  Weight: 88.53 kg

DRUGS (3)
  1. ARMOUR THRYROID [Concomitant]
     Indication: THYROIDECTOMY
     Route: 048
     Dates: start: 1999
  2. B12 INJECTIONS [Concomitant]
     Indication: PERNICIOUS ANAEMIA
     Route: 048
     Dates: start: 1998
  3. INTRAROSA [Suspect]
     Active Substance: PRASTERONE
     Indication: VULVOVAGINAL DRYNESS
     Route: 067
     Dates: start: 20190515

REACTIONS (2)
  - Off label use [Unknown]
  - Product administration error [Unknown]

NARRATIVE: CASE EVENT DATE: 20190515
